FAERS Safety Report 20172014 (Version 3)
Quarter: 2022Q1

REPORT INFORMATION
  Report Type: Report from Study
  Country: US (occurrence: US)
  Receive Date: 20211210
  Receipt Date: 20220318
  Transmission Date: 20220423
  Serious: Yes (Other)
  Sender: FDA-Public Use
  Company Number: US-NOVARTISTESTPH-NVSC2021US283117

PATIENT
  Age: 44 Year
  Sex: Female

DRUGS (3)
  1. GILENYA [Suspect]
     Active Substance: FINGOLIMOD HYDROCHLORIDE
     Indication: Multiple sclerosis
     Dosage: 0.5 MG
     Route: 048
     Dates: start: 20211208
  2. GILENYA [Suspect]
     Active Substance: FINGOLIMOD HYDROCHLORIDE
     Dosage: 0.5 MG, QD
     Route: 048
  3. GILENYA [Suspect]
     Active Substance: FINGOLIMOD HYDROCHLORIDE
     Dosage: UNK UNK, QOD (FOR A PERIOD OF 2 WEEKS)
     Route: 065

REACTIONS (19)
  - Multiple sclerosis [Unknown]
  - Muscular weakness [Unknown]
  - Musculoskeletal stiffness [Unknown]
  - Tremor [Unknown]
  - Visual impairment [Unknown]
  - Facial pain [Unknown]
  - Neck pain [Unknown]
  - Eye pain [Unknown]
  - Photosensitivity reaction [Unknown]
  - Arthralgia [Unknown]
  - Asthenia [Unknown]
  - Vitreous floaters [Unknown]
  - Abdominal pain upper [Unknown]
  - Flatulence [Unknown]
  - Vision blurred [Unknown]
  - Nausea [Unknown]
  - Oral herpes [Unknown]
  - Headache [Unknown]
  - Prosopagnosia [Unknown]

NARRATIVE: CASE EVENT DATE: 20211208
